FAERS Safety Report 25350942 (Version 2)
Quarter: 2025Q2

REPORT INFORMATION
  Report Type: Spontaneous
  Country: DE (occurrence: DE)
  Receive Date: 20250523
  Receipt Date: 20250604
  Transmission Date: 20250717
  Serious: Yes (Hospitalization, Other)
  Sender: NOVO NORDISK
  Company Number: DE-NOVOPROD-1434731

PATIENT
  Age: 43 Year
  Sex: Male
  Weight: 70 kg

DRUGS (10)
  1. NOVORAPID [Suspect]
     Active Substance: INSULIN ASPART
     Indication: Type 1 diabetes mellitus
     Route: 058
     Dates: end: 20250516
  2. CHOLECALCIFEROL [Concomitant]
     Active Substance: CHOLECALCIFEROL
  3. CENOBAMATE [Concomitant]
     Active Substance: CENOBAMATE
     Dosage: 200 MG, QD (0-0-1-0)
  4. CENOBAMATE [Concomitant]
     Active Substance: CENOBAMATE
     Dosage: 50 MG, QD (0-0-1-0)
  5. LEVETIRACETAM [Concomitant]
     Active Substance: LEVETIRACETAM
     Dosage: 1000 MG, BID (1-0-1-0)
  6. LEVETIRACETAM [Concomitant]
     Active Substance: LEVETIRACETAM
     Dosage: 750 MG, BID (1-0-1-0)
  7. LACTULOSE [Concomitant]
     Active Substance: LACTULOSE
     Dosage: 20 ML, QD (1-0-0-0)
  8. POLYETHYLENE GLYCOLS [Concomitant]
     Active Substance: POLYETHYLENE GLYCOLS
     Indication: Constipation
  9. DICLOFENAC [Concomitant]
     Active Substance: DICLOFENAC
  10. CLOBAZAM [Concomitant]
     Active Substance: CLOBAZAM
     Indication: Epilepsy

REACTIONS (1)
  - Insulin autoimmune syndrome [Not Recovered/Not Resolved]

NARRATIVE: CASE EVENT DATE: 20250101
